FAERS Safety Report 25314952 (Version 3)
Quarter: 2025Q3

REPORT INFORMATION
  Report Type: Spontaneous
  Country: US (occurrence: US)
  Receive Date: 20250514
  Receipt Date: 20250811
  Transmission Date: 20251021
  Serious: Yes (Hospitalization, Other)
  Sender: SANOFI AVENTIS
  Company Number: US-SA-2025SA136251

PATIENT
  Age: 63 Year
  Sex: Male

DRUGS (1)
  1. DUPIXENT [Suspect]
     Active Substance: DUPILUMAB
     Indication: Dermatitis atopic
     Dosage: 300 MG, QOW
     Route: 065
     Dates: start: 202503

REACTIONS (2)
  - Epilepsy [Unknown]
  - Rash [Unknown]

NARRATIVE: CASE EVENT DATE: 20250101
